FAERS Safety Report 18802086 (Version 3)
Quarter: 2021Q1

REPORT INFORMATION
  Report Type: Spontaneous
  Country: US (occurrence: US)
  Receive Date: 20210128
  Receipt Date: 20210223
  Transmission Date: 20210419
  Serious: No
  Sender: FDA-Public Use
  Company Number: US-PFIZER INC-2020143552

PATIENT
  Age: 47 Year
  Sex: Female

DRUGS (1)
  1. GENOTROPIN [Suspect]
     Active Substance: SOMATROPIN
     Dosage: 1.0 MG, 5 DAYS A WEEK/1.0 MG 5 DAYS PER WEEK
     Dates: end: 20210124

REACTIONS (8)
  - Loss of personal independence in daily activities [Unknown]
  - Angiopathy [Unknown]
  - Dehydration [Unknown]
  - Muscle spasms [Unknown]
  - Visual impairment [Unknown]
  - Malaise [Unknown]
  - Intentional product misuse [Unknown]
  - Insomnia [Unknown]
